FAERS Safety Report 8731510 (Version 3)
Quarter: 2013Q1

REPORT INFORMATION
  Report Type: Spontaneous
  Country: BR (occurrence: BR)
  Receive Date: 20120820
  Receipt Date: 20130318
  Transmission Date: 20140127
  Serious: No
  Sender: FDA-Public Use
  Company Number: PHHY2012BR071110

PATIENT
  Age: 84 Year
  Sex: Male

DRUGS (4)
  1. EXELON PATCH [Suspect]
     Indication: DEMENTIA ALZHEIMER^S TYPE
     Dosage: 4.6 MG/24HS, ONE PATCH
     Route: 062
  2. EXELON PATCH [Suspect]
     Dosage: 4.6 MG/24 HOURS, ONE PATCH
     Route: 062
  3. MIRTAZAPINE [Suspect]
     Indication: DEMENTIA ALZHEIMER^S TYPE
     Dosage: 30MG, ONCE AT NIGHT
  4. EBIXA [Suspect]
     Indication: DEMENTIA ALZHEIMER^S TYPE
     Dosage: 1 DF, IN THE MORNING AND 1DF AT NIGHT

REACTIONS (1)
  - Haematochezia [Not Recovered/Not Resolved]
